FAERS Safety Report 6286593-0 (Version None)
Quarter: 2009Q3

REPORT INFORMATION
  Report Type: 
  Country: None (occurrence: None)
  Receive Date: 20090728
  Receipt Date: 20090715
  Transmission Date: 20100115
  Serious: Yes (Other)
  Sender: FDA-Public Use
  Company Number: PHHY2009GB29829

PATIENT
  Sex: Female

DRUGS (2)
  1. CLOZARIL [Suspect]
     Indication: SCHIZOPHRENIA
     Dosage: UNK
     Dates: start: 20000713
  2. CLOZARIL [Suspect]
     Dosage: 12.5 MG, QD

REACTIONS (3)
  - DYSPNOEA [None]
  - LOWER RESPIRATORY TRACT INFECTION [None]
  - MALAISE [None]
